FAERS Safety Report 6179504-X (Version None)
Quarter: 2009Q2

REPORT INFORMATION
  Report Type: 
  Country: None (occurrence: None)
  Receive Date: 20090505
  Receipt Date: 20090423
  Transmission Date: 20091009
  Serious: Yes (Other)
  Sender: FDA-Public Use
  Company Number: FR-PFIZER INC-2009161525

PATIENT

DRUGS (5)
  1. NEURONTIN [Suspect]
     Indication: NEUROPATHY PERIPHERAL
     Dosage: FREQUENCY: EVERY DAY;
     Dates: start: 20081201, end: 20090124
  2. BACTRIM [Suspect]
     Dates: start: 20080101
  3. CORTANCYL [Concomitant]
     Dosage: UNK
     Dates: start: 20081101
  4. PROGRAF [Concomitant]
  5. IMUREL [Concomitant]

REACTIONS (9)
  - ANOREXIA [None]
  - ANXIETY [None]
  - DEPRESSED MOOD [None]
  - FATIGUE [None]
  - HYPERKERATOSIS [None]
  - MIGRAINE WITH AURA [None]
  - PAIN [None]
  - SKIN EXFOLIATION [None]
  - SOMNOLENCE [None]
